FAERS Safety Report 7810783-6 (Version None)
Quarter: 2011Q4

REPORT INFORMATION
  Report Type: 
  Country: None (occurrence: None)
  Receive Date: 20111011
  Receipt Date: 20110926
  Transmission Date: 20120403
  Serious: Yes (Hospitalization, Other)
  Sender: FDA-Public Use
  Company Number: 1000024112

PATIENT
  Age: 67 Year
  Sex: Female
  Weight: 53.5 kg

DRUGS (11)
  1. STILNOX (ZOLPIDEM TARTRATE) (TABLETS) (ZOLPIDEM TARTRATE) [Concomitant]
  2. ESCITALOPRAM [Suspect]
     Indication: BIPOLAR DISORDER
     Dosage: 15 MG (15 MG,1 IN 1 D),ORAL
     Route: 048
     Dates: start: 20070101
  3. ESCITALOPRAM [Suspect]
     Indication: DEPRESSION
     Dosage: 15 MG (15 MG,1 IN 1 D),ORAL
     Route: 048
     Dates: start: 20070101
  4. CREON (PANCREATIN) (PANCREATIN) [Concomitant]
  5. PANTOZOL (PANTOPRAZOLE SODIUM SESQUIHYDRATE) (TABLETS) (PANTOPRAZOLE S [Concomitant]
  6. NOVALGIN (NOVO-PETRIN) (NOVO-PETRIN) [Concomitant]
  7. TEMESTA (LORAZEPAM) (TABLETS) (LORAZEPAM) [Concomitant]
  8. NOVOTHYRAL (LEVOTHYROXINE) (TABLETS) (LEVOTHYROXINE) [Concomitant]
  9. DALFAGAN (PARACETAMOL) (TABLETS) (PARACETAMOL) [Concomitant]
  10. REMERON [Concomitant]
  11. TRUXAL DRAGEES (CHLORPROTHIXENE HYDROCHLORIDE) (TABLETS) (CHLORPROTHIX [Concomitant]

REACTIONS (2)
  - OFF LABEL USE [None]
  - PANCREATITIS ACUTE [None]
